FAERS Safety Report 4709539-2 (Version None)
Quarter: 2005Q3

REPORT INFORMATION
  Report Type: 
  Country: None (occurrence: None)
  Receive Date: 20050706
  Receipt Date: 20050621
  Transmission Date: 20060218
  Serious: Yes (Disabling)
  Sender: FDA-Public Use
  Company Number: 2005-01303

PATIENT
  Age: 69 Year
  Sex: Male
  Weight: 77 kg

DRUGS (7)
  1. VELCADE [Suspect]
     Indication: MULTIPLE MYELOMA
     Dosage: 1.90 MG, 2/WEEK, INTRAVENOUS
     Route: 042
     Dates: start: 20050524
  2. ERYTHROPOIETIN (ERYTHROPOIETIN) [Concomitant]
  3. DEXAMETHASONE [Concomitant]
  4. RANITIDINE [Concomitant]
  5. PALLADONE XL [Concomitant]
  6. VENTOLIN (SALBUTAMOL) INHALATION GAS [Concomitant]
  7. BECOTIDE (BECLOMETASONE DIPROPIONATE) INHALATION GAS [Concomitant]

REACTIONS (6)
  - ANOREXIA [None]
  - HAEMOGLOBIN DECREASED [None]
  - INFLUENZA LIKE ILLNESS [None]
  - LETHARGY [None]
  - MALAISE [None]
  - MYALGIA [None]
